FAERS Safety Report 8853409 (Version 5)
Quarter: 2014Q1

REPORT INFORMATION
  Report Type: Spontaneous
  Country: US (occurrence: US)
  Receive Date: 20121022
  Receipt Date: 20140327
  Transmission Date: 20141002
  Serious: Yes (Hospitalization, Disabling, Other)
  Sender: FDA-Public Use
  Company Number: US-009507513-1210USA007650

PATIENT
  Sex: Female

DRUGS (7)
  1. FOSAMAX [Suspect]
     Indication: OSTEOPENIA
     Dosage: 10 MG, UNK
     Route: 048
     Dates: start: 200104, end: 200206
  2. FOSAMAX [Suspect]
     Indication: OSTEOPOROSIS
     Dosage: 70 MG, UNK
     Route: 048
     Dates: start: 20020625, end: 20080318
  3. FOSAMAX [Suspect]
     Dosage: UNK
     Route: 048
     Dates: end: 20111130
  4. ALENDRONATE SODIUM [Suspect]
     Indication: OSTEOPENIA
     Dosage: 70 MG, UNK
     Route: 048
     Dates: start: 20080318, end: 20101024
  5. ALENDRONATE SODIUM [Suspect]
     Indication: OSTEOPOROSIS
  6. CALCIUM (UNSPECIFIED) [Concomitant]
     Indication: BLOOD CALCIUM DECREASED
     Dosage: 1000 MG, UNK
     Route: 048
  7. PREDNISONE [Concomitant]
     Indication: ASTHMA
     Dosage: UNK
     Dates: start: 200509, end: 201201

REACTIONS (30)
  - Femur fracture [Not Recovered/Not Resolved]
  - Intramedullary rod insertion [Unknown]
  - Intervertebral disc operation [Unknown]
  - Hip arthroplasty [Unknown]
  - Spinal fusion surgery [Unknown]
  - Impaired healing [Unknown]
  - Bone graft [Unknown]
  - Surgery [Unknown]
  - Fall [Unknown]
  - Osteoarthritis [Unknown]
  - Packed red blood cell transfusion [Unknown]
  - Hysterectomy [Unknown]
  - Pain [Not Recovered/Not Resolved]
  - Hypertension [Unknown]
  - Appendicectomy [Unknown]
  - Cervical radiculopathy [Unknown]
  - Essential tremor [Recovering/Resolving]
  - Compression fracture [Unknown]
  - Food allergy [Recovering/Resolving]
  - Deep vein thrombosis [Unknown]
  - Hyperlipidaemia [Unknown]
  - Hypercholesterolaemia [Unknown]
  - Peptic ulcer [Unknown]
  - Sciatica [Unknown]
  - Osteoarthritis [Unknown]
  - Fibrocystic breast disease [Unknown]
  - Arthritis [Unknown]
  - Pain in extremity [Unknown]
  - Angioedema [Recovering/Resolving]
  - Gastrooesophageal reflux disease [Unknown]
